FAERS Safety Report 5736135-0 (Version None)
Quarter: 2008Q2

REPORT INFORMATION
  Report Type: 
  Country: None (occurrence: None)
  Receive Date: 20080509
  Receipt Date: 20080509
  Transmission Date: 20081010
  Serious: Yes (Life-Threatening)
  Sender: FDA-Public Use
  Company Number: None

PATIENT
  Age: 70 Year
  Sex: Male

DRUGS (1)
  1. LOSARTAN POTASSIUM [Suspect]
     Indication: HYPERTENSION
     Dosage: 50 MG  EVERY DAY       PO
     Route: 048
     Dates: start: 20080503, end: 20080505

REACTIONS (2)
  - ANGIOEDEMA [None]
  - SWOLLEN TONGUE [None]
